FAERS Safety Report 8270007-5 (Version None)
Quarter: 2012Q2

REPORT INFORMATION
  Report Type: 
  Country: None (occurrence: None)
  Receive Date: 20120410
  Receipt Date: 20120405
  Transmission Date: 20120825
  Serious: No
  Sender: FDA-Public Use
  Company Number: US-PFIZER INC-2012086723

PATIENT
  Sex: Female
  Weight: 64.399 kg

DRUGS (1)
  1. MOTRIN [Suspect]
     Dosage: UNK
     Dates: start: 19920101

REACTIONS (1)
  - GASTROOESOPHAGEAL REFLUX DISEASE [None]
